FAERS Safety Report 9814595 (Version 1)
Quarter: 2014Q1

REPORT INFORMATION
  Report Type: Spontaneous
  Country: US (occurrence: US)
  Receive Date: 20140113
  Receipt Date: 20140113
  Transmission Date: 20141002
  Serious: No
  Sender: FDA-Public Use
  Company Number: US-ENDO PHARMACEUTICALS INC.-HCDA20130152

PATIENT
  Sex: Male

DRUGS (3)
  1. HYDROCODONE BITARTRATE / ACETAMINOPHEN 10MG/500MG [Suspect]
     Indication: BREAKTHROUGH PAIN
     Dosage: 40/2000 MG
     Route: 048
     Dates: start: 2009, end: 20131121
  2. OPANA ER [Concomitant]
     Indication: PAIN
     Dosage: UNK
     Route: 048
     Dates: start: 201210, end: 2013
  3. MORPHINE PUMP [Concomitant]
     Indication: PAIN
     Dosage: UNK
     Route: 065
     Dates: start: 20130821

REACTIONS (1)
  - Hot flush [Unknown]
